FAERS Safety Report 8896174 (Version 4)
Quarter: 2013Q3

REPORT INFORMATION
  Report Type: Spontaneous
  Country: US (occurrence: US)
  Receive Date: 20121108
  Receipt Date: 20130829
  Transmission Date: 20140515
  Serious: No
  Sender: FDA-Public Use
  Company Number: US-ASTRAZENECA-2012SE84384

PATIENT
  Age: 64 Year
  Sex: Female

DRUGS (2)
  1. NEXIUM [Suspect]
     Route: 048
     Dates: end: 201304
  2. CRESTOR [Suspect]
     Route: 048
     Dates: end: 201304

REACTIONS (7)
  - Barrett^s oesophagus [Unknown]
  - Regurgitation [Unknown]
  - Benign oesophageal neoplasm [Unknown]
  - Hypertension [Unknown]
  - Malaise [Unknown]
  - Adverse event [Unknown]
  - Drug dose omission [Unknown]
